FAERS Safety Report 18345644 (Version 1)
Quarter: 2020Q4

REPORT INFORMATION
  Report Type: Spontaneous
  Country: US (occurrence: US)
  Receive Date: 20201005
  Receipt Date: 20201005
  Transmission Date: 20210114
  Serious: Yes (Hospitalization)
  Sender: FDA-Public Use
  Company Number: US-RADIUS HEALTH INC.-2020US003426

PATIENT
  Sex: Female
  Weight: 50.34 kg

DRUGS (1)
  1. TYMLOS [Suspect]
     Active Substance: ABALOPARATIDE
     Indication: PRODUCT USED FOR UNKNOWN INDICATION
     Dosage: 80MCG/QD
     Route: 058
     Dates: start: 202008

REACTIONS (2)
  - Migraine [Unknown]
  - Arthralgia [Unknown]
